FAERS Safety Report 6574637-8 (Version None)
Quarter: 2010Q1

REPORT INFORMATION
  Report Type: 
  Country: None (occurrence: None)
  Receive Date: 20100201
  Receipt Date: 20100125
  Transmission Date: 20100710
  Serious: Yes (Hospitalization)
  Sender: FDA-Public Use
  Company Number: 2009SP025582

PATIENT
  Age: 66 Year
  Sex: Female

DRUGS (3)
  1. DEXAMETHASONE [Suspect]
     Indication: MULTIPLE MYELOMA
     Dosage: 40 MG;QD;PO
     Route: 048
     Dates: start: 20080815
  2. DASATINIB (DASATINIB) [Suspect]
     Indication: MULTIPLE MYELOMA
     Dosage: 70 MG;QD;PO
     Route: 048
     Dates: start: 20080815
  3. LANALIDOMIDE (LENALIDOMIDE) [Suspect]
     Indication: MULTIPLE MYELOMA
     Dosage: 15 MG;QD;PO
     Route: 048
     Dates: start: 20080815

REACTIONS (1)
  - PNEUMONIA [None]
